FAERS Safety Report 7106528-8 (Version None)
Quarter: 2010Q4

REPORT INFORMATION
  Report Type: 
  Country: None (occurrence: None)
  Receive Date: 20101116
  Receipt Date: 20101111
  Transmission Date: 20110411
  Serious: Yes (Other)
  Sender: FDA-Public Use
  Company Number: SE-PFIZER INC-2010126637

PATIENT
  Age: 63 Year
  Sex: Female

DRUGS (1)
  1. DETRUSITOL [Suspect]
     Indication: URINARY INCONTINENCE
     Dosage: UNK

REACTIONS (1)
  - COLITIS ULCERATIVE [None]
